FAERS Safety Report 20111038 (Version 1)
Quarter: 2022Q1

REPORT INFORMATION
  Report Type: Spontaneous
  Country: US (occurrence: US)
  Receive Date: 20211125
  Receipt Date: 20211125
  Transmission Date: 20220423
  Serious: Yes (Other)
  Sender: FDA-Public Use
  Company Number: US-SIMILASAN-2021USSIMSPO00091

PATIENT

DRUGS (3)
  1. ATROPA BELLADONNA\HOMEOPATHICS [Suspect]
     Active Substance: ATROPA BELLADONNA\HOMEOPATHICS
     Indication: Product used for unknown indication
  2. CETIRIZINE [Suspect]
     Active Substance: CETIRIZINE HYDROCHLORIDE
     Indication: Product used for unknown indication
  3. ERYTHROMYCIN [Suspect]
     Active Substance: ERYTHROMYCIN
     Indication: Product used for unknown indication

REACTIONS (2)
  - Concomitant disease aggravated [Unknown]
  - Angle closure glaucoma [Unknown]
